FAERS Safety Report 4390458-9 (Version None)
Quarter: 2004Q2

REPORT INFORMATION
  Report Type: 
  Country: None (occurrence: None)
  Receive Date: 20040630
  Receipt Date: 20040319
  Transmission Date: 20050107
  Serious: Yes (Life-Threatening, Hospitalization)
  Sender: FDA-Public Use
  Company Number: INOX-PR-0403S-0002

PATIENT
  Age: 16 Year
  Sex: Female

DRUGS (5)
  1. INDIUM CHLORIDE IN-111 [Suspect]
     Indication: ABSCESS
     Dosage: 37 MBQ (SINGLE DOSE); I.V.
     Route: 042
     Dates: start: 20040219, end: 20040219
  2. METRONIDAZOLE (FLAGIL) [Concomitant]
  3. CIPROFLAXIACIN HYDROCHLORIDE (CIPRO) [Concomitant]
  4. VANCOMYCIN [Concomitant]
  5. UNSPECIFIED BIRTH CONTROL PILL [Concomitant]

REACTIONS (11)
  - BRONCHOSPASM [None]
  - BURNING SENSATION [None]
  - CARDIAC ARREST [None]
  - CHEST PAIN [None]
  - CONTRAST MEDIA REACTION [None]
  - CYANOSIS [None]
  - HEART RATE INCREASED [None]
  - INFUSION RELATED REACTION [None]
  - LIVEDO RETICULARIS [None]
  - LOSS OF CONSCIOUSNESS [None]
  - VEIN PAIN [None]
